FAERS Safety Report 15735164 (Version 3)
Quarter: 2019Q2

REPORT INFORMATION
  Report Type: Report from Study
  Country: GB (occurrence: GB)
  Receive Date: 20181218
  Receipt Date: 20190405
  Transmission Date: 20190711
  Serious: Yes (Hospitalization)
  Sender: FDA-Public Use
  Company Number: GB-ROCHE-2228918

PATIENT
  Age: 66 Year
  Sex: Male
  Weight: 75 kg

DRUGS (36)
  1. LEVOTHYROXINE. [Concomitant]
     Active Substance: LEVOTHYROXINE
     Indication: HYPOTHYROIDISM
     Route: 065
     Dates: start: 201709
  2. DERMOL [Concomitant]
     Active Substance: BENZALKONIUM CHLORIDE\CHLORHEXIDINE HYDROCHLORIDE\ISOPROPYL MYRISTATE\PARAFFIN
     Indication: RASH
     Dosage: RASH ON FACE + CHEST + BACK
     Route: 065
     Dates: start: 20180525
  3. LORATADINE. [Concomitant]
     Active Substance: LORATADINE
     Indication: RASH
     Route: 065
     Dates: start: 20181018, end: 20181211
  4. SODIUM CHLORIDE. [Concomitant]
     Active Substance: SODIUM CHLORIDE
     Indication: PROPHYLAXIS
     Route: 065
     Dates: start: 20181211, end: 20181216
  5. LYMECYCLINE [Concomitant]
     Active Substance: LYMECYCLINE
     Indication: RASH
     Dosage: RASH ON FACE + CHEST + BACK + RASH ON SCALP
     Route: 065
     Dates: start: 20180525, end: 20181211
  6. LYMECYCLINE [Concomitant]
     Active Substance: LYMECYCLINE
     Indication: DERMATITIS ACNEIFORM
     Route: 065
     Dates: start: 20190205
  7. PANTOPRAZOLE [Concomitant]
     Active Substance: PANTOPRAZOLE
     Indication: GASTRITIS PROPHYLAXIS
     Route: 065
     Dates: start: 20181212, end: 20181218
  8. SELINE [Concomitant]
     Indication: PROPHYLAXIS
     Route: 065
     Dates: start: 20181213, end: 20181216
  9. KCL [Concomitant]
     Active Substance: POTASSIUM CHLORIDE
     Indication: HYPOKALAEMIA
     Route: 065
     Dates: start: 20181216, end: 20181216
  10. COBIMETINIB. [Suspect]
     Active Substance: COBIMETINIB
     Indication: SQUAMOUS CELL CARCINOMA OF HEAD AND NECK
     Dosage: DATE OF MOST RECENT DOSE OF COBIMETINIB PRIOR TO SAE ONSET 03/DEC/2018? ONCE A DAY ON DAYS 1-21 OF E
     Route: 048
     Dates: start: 20180430
  11. BETAMETHASONE VALERATE. [Concomitant]
     Active Substance: BETAMETHASONE VALERATE
     Indication: RASH
     Dosage: RASH ON SCALP
     Route: 065
     Dates: start: 20180525
  12. BENZYDAMINE HYDROCHLORIDE [Concomitant]
     Active Substance: BENZYDAMINE HYDROCHLORIDE
     Indication: ORAL PAIN
     Route: 065
     Dates: start: 20180525
  13. MOMETASONE FUROATE. [Concomitant]
     Active Substance: MOMETASONE FUROATE
     Indication: RASH
     Route: 065
     Dates: start: 20181031
  14. EPADERM [Concomitant]
     Active Substance: MINERAL OIL\PETROLATUM\WAX, EMULSIFYING
     Indication: RASH
     Route: 065
     Dates: start: 20181031
  15. CANDESARTAN. [Concomitant]
     Active Substance: CANDESARTAN
     Route: 065
     Dates: start: 20181211, end: 20181213
  16. DOXYCYCLINE. [Concomitant]
     Active Substance: DOXYCYCLINE
     Route: 065
     Dates: start: 20181127, end: 20181201
  17. SPIRONOLACTONE. [Concomitant]
     Active Substance: SPIRONOLACTONE
     Route: 065
     Dates: start: 20190115
  18. TINZAPARIN [Concomitant]
     Active Substance: TINZAPARIN
     Indication: PROPHYLAXIS
     Route: 065
     Dates: start: 20181211, end: 20181219
  19. HARTMANS [Concomitant]
     Route: 065
     Dates: start: 20181211, end: 20181217
  20. MAGNESIUM SULPHATE [Concomitant]
     Active Substance: MAGNESIUM SULFATE
     Indication: HYPOMAGNESAEMIA
     Route: 065
     Dates: start: 20181211, end: 20181211
  21. LANSOPRAZOLE. [Concomitant]
     Active Substance: LANSOPRAZOLE
     Indication: DYSPEPSIA
     Dosage: PROPHYLAXIS FOR DYSPEPSIA
     Route: 065
     Dates: start: 201709
  22. E45 [Concomitant]
     Active Substance: LANOLIN\LIGHT MINERAL OIL\PARAFFIN
     Indication: RASH
     Route: 065
     Dates: start: 20181108
  23. SPIRONOLACTONE. [Concomitant]
     Active Substance: SPIRONOLACTONE
     Indication: HYPERTENSION
     Route: 065
     Dates: start: 20180807, end: 20181211
  24. ZOPICLONE [Concomitant]
     Active Substance: ZOPICLONE
     Indication: INSOMNIA
     Route: 065
     Dates: start: 20181214, end: 20181219
  25. CALCIUM GLUCONATE. [Concomitant]
     Active Substance: CALCIUM GLUCONATE
     Indication: HYPOCALCAEMIA
     Route: 065
     Dates: start: 20181213, end: 20181214
  26. LEVOTHYROXINE. [Concomitant]
     Active Substance: LEVOTHYROXINE
     Indication: THYROID HORMONE REPLACEMENT THERAPY
  27. NYSTATIN. [Concomitant]
     Active Substance: NYSTATIN
     Dosage: PROPHYLAXIS OF YEAST GROWTH ON VOICE PROSTHESIS
     Route: 065
     Dates: start: 20170524, end: 20181112
  28. NYSTATIN. [Concomitant]
     Active Substance: NYSTATIN
     Route: 065
     Dates: start: 20190304, end: 20190305
  29. CLINDAMYCIN. [Concomitant]
     Active Substance: CLINDAMYCIN
     Indication: DERMATITIS ACNEIFORM
     Route: 065
     Dates: start: 20180531
  30. CANDESARTAN. [Concomitant]
     Active Substance: CANDESARTAN
     Indication: HYPERTENSION
     Dosage: BASELINE HYPERTENSION
     Route: 065
     Dates: start: 20181107, end: 20181114
  31. CANDESARTAN. [Concomitant]
     Active Substance: CANDESARTAN
     Dosage: BASELINE HYPERTENSION
     Route: 065
     Dates: start: 20181115, end: 20181211
  32. CIPROFLOXACIN. [Concomitant]
     Active Substance: CIPROFLOXACIN
     Indication: OTITIS EXTERNA
     Route: 065
     Dates: start: 20181130, end: 20181206
  33. ATEZOLIZUMAB. [Suspect]
     Active Substance: ATEZOLIZUMAB
     Indication: SQUAMOUS CELL CARCINOMA OF HEAD AND NECK
     Dosage: DATE OF MOST RECENT DOSE OF ATEZOLIZUMAB PRIOR TO SAE ONSET 27/NOV/2018 (840 MG)
     Route: 042
     Dates: start: 20180430
  34. ALFACALCIDOL [Concomitant]
     Active Substance: ALFACALCIDOL
     Indication: HYPOTHYROIDISM
     Route: 065
     Dates: start: 201709
  35. LOPERAMIDE [Concomitant]
     Active Substance: LOPERAMIDE
     Indication: DIARRHOEA
     Route: 065
     Dates: start: 20180514
  36. CANDESARTAN. [Concomitant]
     Active Substance: CANDESARTAN
     Route: 065
     Dates: start: 20190115

REACTIONS (1)
  - Large intestine perforation [Recovered/Resolved]

NARRATIVE: CASE EVENT DATE: 20181210
